APPROVED DRUG PRODUCT: BRETHINE
Active Ingredient: TERBUTALINE SULFATE
Strength: 1MG/ML **Federal Register determination that product was not discontinued or withdrawn for safety or effectiveness reasons**
Dosage Form/Route: INJECTABLE;INJECTION
Application: N018571 | Product #001
Applicant: PHARMACARE LTD
Approved: Approved Prior to Jan 1, 1982 | RLD: Yes | RS: No | Type: DISCN